FAERS Safety Report 15485349 (Version 1)
Quarter: 2018Q4

REPORT INFORMATION
  Report Type: Spontaneous
  Country: US (occurrence: US)
  Receive Date: 20181010
  Receipt Date: 20181010
  Transmission Date: 20190205
  Serious: No
  Sender: FDA-Public Use
  Company Number: US-ROCHE-2173808

PATIENT
  Sex: Male

DRUGS (3)
  1. ALECTINIB. [Suspect]
     Active Substance: ALECTINIB
     Indication: NON-SMALL CELL LUNG CANCER
     Dosage: STANDARD DOSE
     Route: 065
  2. ALECTINIB. [Suspect]
     Active Substance: ALECTINIB
     Route: 065
  3. ALECTINIB. [Suspect]
     Active Substance: ALECTINIB
     Route: 065

REACTIONS (1)
  - Fatigue [Unknown]
